FAERS Safety Report 9188535 (Version 4)
Quarter: 2013Q4

REPORT INFORMATION
  Report Type: Report from Study
  Country: PY (occurrence: PY)
  Receive Date: 20130325
  Receipt Date: 20131024
  Transmission Date: 20140711
  Serious: Yes (Death, Other)
  Sender: FDA-Public Use
  Company Number: PHHY2013PY028503

PATIENT
  Sex: Female

DRUGS (1)
  1. GLIVEC [Suspect]
     Indication: CHRONIC MYELOID LEUKAEMIA
     Dosage: 300 MG, DAILY
     Route: 048
     Dates: start: 201012

REACTIONS (7)
  - Septic shock [Fatal]
  - Breast cancer [Fatal]
  - Breast swelling [Fatal]
  - Breast pain [Fatal]
  - Second primary malignancy [Fatal]
  - Leukopenia [Unknown]
  - Pancytopenia [Unknown]
